FAERS Safety Report 8619995-5 (Version None)
Quarter: 2012Q3

REPORT INFORMATION
  Report Type: 
  Country: None (occurrence: None)
  Receive Date: 20120816
  Receipt Date: 20120816
  Transmission Date: 20120928
  Serious: Yes (Death, Other)
  Sender: FDA-Public Use
  Company Number: None

PATIENT
  Age: 84 Year
  Sex: Male
  Weight: 65 kg

DRUGS (2)
  1. PRADAXA [Suspect]
     Indication: CEREBROVASCULAR ACCIDENT
  2. PRADAXA [Suspect]
     Indication: ATRIAL FIBRILLATION

REACTIONS (9)
  - HAEMATOCRIT DECREASED [None]
  - DEHYDRATION [None]
  - HYPOTENSION [None]
  - FALL [None]
  - CONTUSION [None]
  - RENAL IMPAIRMENT [None]
  - BLOOD CREATININE INCREASED [None]
  - INTRA-ABDOMINAL HAEMATOMA [None]
  - PELVIC FRACTURE [None]
